FAERS Safety Report 12954321 (Version 2)
Quarter: 2017Q1

REPORT INFORMATION
  Report Type: Report from Study
  Country: US (occurrence: US)
  Receive Date: 20161118
  Receipt Date: 20170314
  Transmission Date: 20170428
  Serious: Yes (Hospitalization)
  Sender: FDA-Public Use
  Company Number: US-BAYER-2016-217239

PATIENT
  Age: 65 Year
  Sex: Male

DRUGS (2)
  1. XOFIGO [Suspect]
     Active Substance: RADIUM RA-223 DICHLORIDE
     Indication: METASTASES TO BONE
     Dosage: 121 UCI, ONCE EVERY 28 DAYS
     Dates: start: 20170127
  2. XOFIGO [Suspect]
     Active Substance: RADIUM RA-223 DICHLORIDE
     Indication: PROSTATE CANCER STAGE IV
     Dosage: 122.90 UCI, ONCE EVERY 28 DAYS
     Route: 042
     Dates: start: 20160916

REACTIONS (2)
  - Laboratory test abnormal [None]
  - Renal disorder [None]
